FAERS Safety Report 7006176-4 (Version None)
Quarter: 2010Q3

REPORT INFORMATION
  Report Type: 
  Country: None (occurrence: None)
  Receive Date: 20100921
  Receipt Date: 20100914
  Transmission Date: 20110219
  Serious: Yes (Hospitalization)
  Sender: FDA-Public Use
  Company Number: IT-ABBOTT-10P-083-0670823-00

PATIENT
  Sex: Female

DRUGS (1)
  1. HUMIRA [Suspect]
     Indication: PRODUCT USED FOR UNKNOWN INDICATION
     Dosage: CYCLIC
     Dates: start: 20090901, end: 20100810

REACTIONS (4)
  - BALANCE DISORDER [None]
  - DYSKINESIA [None]
  - FIBROADENOMA OF BREAST [None]
  - GAIT DISTURBANCE [None]
